FAERS Safety Report 19868169 (Version 1)
Quarter: 2021Q3

REPORT INFORMATION
  Report Type: Spontaneous
  Country: US (occurrence: US)
  Receive Date: 20210922
  Receipt Date: 20210922
  Transmission Date: 20211014
  Serious: No
  Sender: FDA-Public Use
  Company Number: US-UNICHEM PHARMACEUTICALS (USA) INC-UCM202103-000297

PATIENT
  Age: 70 Year
  Sex: Female

DRUGS (5)
  1. CLONIDINE HCL [Suspect]
     Active Substance: CLONIDINE HYDROCHLORIDE
     Indication: PRODUCT USED FOR UNKNOWN INDICATION
     Dates: start: 2021
  2. PREDNISONE. [Concomitant]
     Active Substance: PREDNISONE
     Indication: PRODUCT USED FOR UNKNOWN INDICATION
  3. HYDROCHLORIDE [Concomitant]
     Active Substance: UNSPECIFIED INGREDIENT
     Indication: HYPERTENSION
  4. CLONIDINE HCL [Suspect]
     Active Substance: CLONIDINE HYDROCHLORIDE
  5. ORENCIA [Concomitant]
     Active Substance: ABATACEPT
     Indication: PRODUCT USED FOR UNKNOWN INDICATION
     Dosage: ORENCIA INFUSION TWICE IN THE WEEK

REACTIONS (2)
  - Somnolence [Unknown]
  - Somnambulism [Unknown]

NARRATIVE: CASE EVENT DATE: 20210322
